FAERS Safety Report 23143185 (Version 1)
Quarter: 2023Q4

REPORT INFORMATION
  Report Type: Spontaneous
  Country: US (occurrence: None)
  Receive Date: 20231103
  Receipt Date: 20231103
  Transmission Date: 20240110
  Serious: No
  Sender: FDA-Public Use
  Company Number: None

PATIENT
  Age: 53 Year
  Sex: Female
  Weight: 54 kg

DRUGS (12)
  1. PREGABALIN [Suspect]
     Active Substance: PREGABALIN
     Indication: Thoracic radiculopathy
     Dosage: OTHER QUANTITY : 1 CAPSULE(S);?FREQUENCY : DAILY;?
     Route: 048
     Dates: start: 20230401, end: 20231102
  2. PREGABALIN [Suspect]
     Active Substance: PREGABALIN
     Indication: Back pain
  3. BACLOFEN [Concomitant]
     Active Substance: BACLOFEN
  4. HYDROMORPHONE [Concomitant]
     Active Substance: HYDROMORPHONE
  5. ESTRADIOL [Concomitant]
     Active Substance: ESTRADIOL
  6. PRIMROSE OIL [Concomitant]
  7. VITAMIN E [Concomitant]
     Active Substance: .ALPHA.-TOCOPHEROL
  8. MAGNESIUM [Concomitant]
     Active Substance: MAGNESIUM
  9. CALCIUM [Concomitant]
     Active Substance: CALCIUM
  10. VITAMIN B-COMPLEX [Concomitant]
     Active Substance: DEXPANTHENOL\NIACINAMIDE\PYRIDOXINE HYDROCHLORIDE\RIBOFLAVIN 5^-PHOSPHATE SODIUM\THIAMINE HYDROCHLOR
  11. VITAMIN D [Concomitant]
     Active Substance: VITAMIN D NOS
  12. Multivitamin WOMENS 50+ [Concomitant]

REACTIONS (9)
  - Speech disorder [None]
  - Memory impairment [None]
  - Depression [None]
  - Suicidal ideation [None]
  - Balance disorder [None]
  - Chest discomfort [None]
  - Vertebral foraminal stenosis [None]
  - Vertebral foraminal stenosis [None]
  - Intervertebral disc protrusion [None]

NARRATIVE: CASE EVENT DATE: 20230715
